FAERS Safety Report 10202177 (Version 1)
Quarter: 2014Q2

REPORT INFORMATION
  Report Type: Spontaneous
  Country: FR (occurrence: FR)
  Receive Date: 20140528
  Receipt Date: 20140528
  Transmission Date: 20141212
  Serious: Yes (Hospitalization)
  Sender: FDA-Public Use
  Company Number: FR-GLAXOSMITHKLINE-B0995485A

PATIENT
  Age: 43 Year
  Sex: Male

DRUGS (2)
  1. SERETIDE DISKUS [Suspect]
     Indication: ASTHMA
     Route: 055
     Dates: start: 201405, end: 201405
  2. BECLOMETHASONE [Concomitant]
     Indication: ASTHMA
     Route: 065
     Dates: end: 201405

REACTIONS (2)
  - Dyspnoea [Unknown]
  - Cyanosis [Unknown]
